FAERS Safety Report 5036034-6 (Version None)
Quarter: 2006Q2

REPORT INFORMATION
  Report Type: 
  Country: None (occurrence: None)
  Receive Date: 20060526
  Receipt Date: 20060324
  Transmission Date: 20061013
  Serious: Yes (Hospitalization, Other)
  Sender: FDA-Public Use
  Company Number: WAES 0601USA02530

PATIENT
  Age: 61 Year
  Sex: Female
  Weight: 75.2971 kg

DRUGS (2)
  1. VYTORIN [Suspect]
     Indication: HYPERLIPIDAEMIA
     Dosage: 10-40 MG DAILY PO
     Route: 048
     Dates: start: 20051001
  2. ANTINEOPLASTIC (UNSPECIFIED) [Concomitant]

REACTIONS (3)
  - BLOOD CREATINE PHOSPHOKINASE INCREASED [None]
  - MYALGIA [None]
  - PAIN IN EXTREMITY [None]
